FAERS Safety Report 23640693 (Version 3)
Quarter: 2024Q2

REPORT INFORMATION
  Report Type: Spontaneous
  Country: US (occurrence: US)
  Receive Date: 20240318
  Receipt Date: 20240420
  Transmission Date: 20240716
  Serious: No
  Sender: FDA-Public Use
  Company Number: US-SA-SAC20240312001419

PATIENT
  Age: 20 Year
  Sex: Male

DRUGS (25)
  1. DUPIXENT [Suspect]
     Active Substance: DUPILUMAB
     Indication: Dermatitis atopic
     Dosage: 600 MG, 1X
     Route: 058
     Dates: start: 20200217, end: 20200217
  2. DUPIXENT [Suspect]
     Active Substance: DUPILUMAB
     Dosage: 300 MG, QOW
     Route: 058
     Dates: start: 2020
  3. DUPIXENT [Suspect]
     Active Substance: DUPILUMAB
     Dosage: UNK
  4. BACTRIM [Concomitant]
     Active Substance: SULFAMETHOXAZOLE\TRIMETHOPRIM
     Dosage: UNK
  5. BACTRIM [Concomitant]
     Active Substance: SULFAMETHOXAZOLE\TRIMETHOPRIM
  6. BETAMETHASONE [Concomitant]
     Active Substance: BETAMETHASONE\BETAMETHASONE DIPROPIONATE
     Dosage: UNK
  7. BETAMETHASONE [Concomitant]
     Active Substance: BETAMETHASONE\BETAMETHASONE DIPROPIONATE
  8. CLOBETASOL [Concomitant]
     Active Substance: CLOBETASOL
     Dosage: UNK
  9. CLOBETASOL [Concomitant]
     Active Substance: CLOBETASOL
  10. DESONIDE [Concomitant]
     Active Substance: DESONIDE
     Dosage: UNK
  11. DESONIDE [Concomitant]
     Active Substance: DESONIDE
  12. DOXYCYCLINE [Concomitant]
     Active Substance: DOXYCYCLINE
     Dosage: UNK
  13. DOXYCYCLINE [Concomitant]
     Active Substance: DOXYCYCLINE
  14. EUCRISA [Concomitant]
     Active Substance: CRISABOROLE
     Dosage: UNK
  15. EUCRISA [Concomitant]
     Active Substance: CRISABOROLE
  16. HYDROXYZINE [Concomitant]
     Active Substance: HYDROXYZINE HYDROCHLORIDE
     Dosage: UNK
  17. HYDROXYZINE [Concomitant]
     Active Substance: HYDROXYZINE HYDROCHLORIDE
  18. PREDNISONE [Concomitant]
     Active Substance: PREDNISONE
     Dosage: UNK
  19. PREDNISONE [Concomitant]
     Active Substance: PREDNISONE
  20. RINVOQ [Concomitant]
     Active Substance: UPADACITINIB
     Dosage: UNK
  21. RINVOQ [Concomitant]
     Active Substance: UPADACITINIB
  22. TACROLIMUS [Concomitant]
     Active Substance: TACROLIMUS
     Dosage: UNK
  23. TACROLIMUS [Concomitant]
     Active Substance: TACROLIMUS
  24. LUMIFY [Concomitant]
     Active Substance: BRIMONIDINE TARTRATE
     Dosage: UNK
  25. LUMIFY [Concomitant]
     Active Substance: BRIMONIDINE TARTRATE

REACTIONS (2)
  - Ocular hyperaemia [Not Recovered/Not Resolved]
  - Conjunctivitis [Unknown]
